FAERS Safety Report 7627302-X (Version None)
Quarter: 2011Q3

REPORT INFORMATION
  Report Type: 
  Country: None (occurrence: None)
  Receive Date: 20110714
  Receipt Date: 20110704
  Transmission Date: 20111222
  Serious: Yes (Hospitalization)
  Sender: FDA-Public Use
  Company Number: UTC-008374

PATIENT
  Age: 54 Year
  Sex: Female

DRUGS (4)
  1. REMODULIN [Suspect]
     Dosage: INTRAVENOUS
     Route: 042
  2. CHILDRENS ASPIRIN (ACETYLSALICYLIC ACID) [Concomitant]
  3. DIGOXIN [Concomitant]
  4. TRACLEER [Suspect]
     Dosage: ORAL
     Route: 048

REACTIONS (3)
  - FLUID RETENTION [None]
  - DELIRIUM [None]
  - RENAL FAILURE [None]
